FAERS Safety Report 24772990 (Version 2)
Quarter: 2024Q4

REPORT INFORMATION
  Report Type: Spontaneous
  Country: JP (occurrence: JP)
  Receive Date: 20241225
  Receipt Date: 20241227
  Transmission Date: 20250114
  Serious: Yes (Hospitalization, Other)
  Sender: ROCHE
  Company Number: JP-ROCHE-10000164542

PATIENT
  Age: 5 Year
  Sex: Male

DRUGS (1)
  1. XOFLUZA [Suspect]
     Active Substance: BALOXAVIR MARBOXIL
     Indication: Product used for unknown indication
     Route: 048
     Dates: start: 20241218, end: 20241218

REACTIONS (3)
  - Melaena [Unknown]
  - Epistaxis [Recovered/Resolved]
  - Activated partial thromboplastin time prolonged [Not Recovered/Not Resolved]

NARRATIVE: CASE EVENT DATE: 20241218
